FAERS Safety Report 13630295 (Version 1)
Quarter: 2017Q2

REPORT INFORMATION
  Report Type: Spontaneous
  Country: US (occurrence: US)
  Receive Date: 20170531
  Receipt Date: 20170531
  Transmission Date: 20170830
  Serious: No
  Sender: FDA-Public Use
  Company Number: US-ASTELLAS-1292877

PATIENT
  Sex: Female
  Weight: 52 kg

DRUGS (9)
  1. TARCEVA [Suspect]
     Active Substance: ERLOTINIB HYDROCHLORIDE
     Indication: LUNG NEOPLASM MALIGNANT
     Dosage: FREQUENCY: DAILY
     Route: 048
  2. NORVASC [Concomitant]
     Active Substance: AMLODIPINE BESYLATE
     Dosage: FREQUENCY: DAILY
     Route: 048
  3. UBIQUINONE-10 [Concomitant]
     Dosage: FREQUENCY: DAILY
     Route: 048
  4. ASPIRIN. [Concomitant]
     Active Substance: ASPIRIN
     Dosage: FREQUENCY: 1 TAB DAILY
     Route: 048
     Dates: end: 20130912
  5. OXYCODONE [Concomitant]
     Active Substance: OXYCODONE
     Dosage: EVERY 4 HOURS AS NEEDED FOR PAIN
     Route: 048
  6. LIPITOR [Concomitant]
     Active Substance: ATORVASTATIN CALCIUM
     Dosage: FREQUENCY: DAILY
     Route: 048
  7. VITAMIN D3 [Concomitant]
     Active Substance: CHOLECALCIFEROL
     Dosage: FREQUENCY: DAILY
     Route: 048
  8. DYAZIDE [Concomitant]
     Active Substance: HYDROCHLOROTHIAZIDE\TRIAMTERENE
     Dosage: 37.5-25 MG CAPSULE, 1 CAPSULE DAILY
     Route: 048
  9. POTASSIUM CHLORIDE. [Concomitant]
     Active Substance: POTASSIUM CHLORIDE
     Dosage: EXTENDED RELEASE TABLETS, FREQUENCY: DAILY
     Route: 048

REACTIONS (3)
  - Laceration [Unknown]
  - Dry eye [Unknown]
  - Flatulence [Unknown]
